FAERS Safety Report 22674227 (Version 13)
Quarter: 2025Q1

REPORT INFORMATION
  Report Type: Report from Study
  Country: US (occurrence: US)
  Receive Date: 20230705
  Receipt Date: 20250329
  Transmission Date: 20250408
  Serious: Yes (Other)
  Sender: TAKEDA
  Company Number: US-TAKEDA-2022TUS025252

PATIENT
  Age: 49 Year
  Sex: Female
  Weight: 95 kg

DRUGS (46)
  1. HUMAN IMMUNOGLOBULIN G [Suspect]
     Active Substance: HUMAN IMMUNOGLOBULIN G
     Indication: Congenital hypogammaglobulinaemia
     Dosage: 40 GRAM, Q4WEEKS
     Dates: start: 20220405
  2. HUMAN IMMUNOGLOBULIN G [Suspect]
     Active Substance: HUMAN IMMUNOGLOBULIN G
     Dosage: 40 GRAM, Q3WEEKS
  3. HUMAN IMMUNOGLOBULIN G [Suspect]
     Active Substance: HUMAN IMMUNOGLOBULIN G
     Dosage: UNK, Q3WEEKS
     Dates: start: 2022
  4. HUMAN IMMUNOGLOBULIN G [Suspect]
     Active Substance: HUMAN IMMUNOGLOBULIN G
     Dosage: 50 GRAM, Q3WEEKS
  5. DIPHENHYDRAMINE [Concomitant]
     Active Substance: DIPHENHYDRAMINE
  6. HEPARIN [Concomitant]
     Active Substance: HEPARIN SODIUM
  7. ASCORBIC ACID\CRANBERRY [Concomitant]
     Active Substance: ASCORBIC ACID\CRANBERRY
  8. ESOMEPRAZOLE MAGNESIUM [Concomitant]
     Active Substance: ESOMEPRAZOLE MAGNESIUM
  9. SODIUM CHLORIDE [Concomitant]
     Active Substance: SODIUM CHLORIDE
  10. EPINEPHRINE [Concomitant]
     Active Substance: EPINEPHRINE
  11. CALCIUM\CHOLECALCIFEROL [Concomitant]
     Active Substance: CALCIUM\CHOLECALCIFEROL
  12. ASPIRIN\METHOCARBAMOL [Concomitant]
     Active Substance: ASPIRIN\METHOCARBAMOL
  13. ONDANSETRON HYDROCHLORIDE [Concomitant]
     Active Substance: ONDANSETRON HYDROCHLORIDE
  14. SPIRONOLACTONE [Concomitant]
     Active Substance: SPIRONOLACTONE
  15. TRAMADOL HCL [Concomitant]
     Active Substance: TRAMADOL HYDROCHLORIDE
  16. ACETAMINOPHEN [Concomitant]
     Active Substance: ACETAMINOPHEN
  17. MIRALAX [Concomitant]
     Active Substance: POLYETHYLENE GLYCOL 3350
  18. METFORMIN HYDROCHLORIDE [Concomitant]
     Active Substance: METFORMIN HYDROCHLORIDE
  19. ATORVASTATIN CALCIUM [Concomitant]
     Active Substance: ATORVASTATIN CALCIUM
  20. FLUCONAZOLE [Concomitant]
     Active Substance: FLUCONAZOLE
  21. SODIUM CHLORIDE [Concomitant]
     Active Substance: SODIUM CHLORIDE
  22. EXCEDRIN EXTRA STRENGTH [Concomitant]
     Active Substance: ACETAMINOPHEN\ASPIRIN\CAFFEINE
  23. SUDAFED [Concomitant]
     Active Substance: PSEUDOEPHEDRINE HYDROCHLORIDE
  24. Lmx [Concomitant]
  25. LOSARTAN POTASSIUM [Concomitant]
     Active Substance: LOSARTAN POTASSIUM
  26. VALACYCLOVIR [Concomitant]
     Active Substance: VALACYCLOVIR HYDROCHLORIDE
  27. ALLEGRA-D [Concomitant]
     Active Substance: FEXOFENADINE HYDROCHLORIDE\PSEUDOEPHEDRINE HYDROCHLORIDE
     Indication: Hypersensitivity
     Dosage: UNK UNK, TID
     Dates: start: 2020
  28. FLONASE ALLERGY RELIEF [Concomitant]
     Active Substance: FLUTICASONE PROPIONATE
     Dosage: UNK UNK, QD
     Dates: start: 2022
  29. OLOPATADINE HYDROCHLORIDE [Concomitant]
     Active Substance: OLOPATADINE HYDROCHLORIDE
  30. FEXOFENADINE [Concomitant]
     Active Substance: FEXOFENADINE HYDROCHLORIDE
  31. ASPIRIN [Concomitant]
     Active Substance: ASPIRIN
  32. CHOLECALCIFEROL [Concomitant]
     Active Substance: CHOLECALCIFEROL
  33. CYANOCOBALAMIN [Concomitant]
     Active Substance: CYANOCOBALAMIN
  34. CLARITIN [Concomitant]
     Active Substance: LORATADINE
  35. ESOMEPRAZOLE [Concomitant]
     Active Substance: ESOMEPRAZOLE
  36. IMITREX [Concomitant]
     Active Substance: SUMATRIPTAN SUCCINATE
  37. IBUPROFEN [Concomitant]
     Active Substance: IBUPROFEN
  38. VITAMIN D3 [Concomitant]
     Active Substance: CHOLECALCIFEROL
  39. GABAPENTIN [Concomitant]
     Active Substance: GABAPENTIN
  40. METHOCARBAMOL [Concomitant]
     Active Substance: METHOCARBAMOL
  41. WELLBUTRIN XL [Concomitant]
     Active Substance: BUPROPION HYDROCHLORIDE
  42. NURTEC ODT [Concomitant]
     Active Substance: RIMEGEPANT SULFATE
     Indication: Migraine
  43. MAGNESIUM MALATE [Concomitant]
     Active Substance: MAGNESIUM MALATE
  44. MAGNESIUM [Concomitant]
     Active Substance: MAGNESIUM
  45. DIPHENHYDRAMINE HYDROCHLORIDE [Concomitant]
     Active Substance: DIPHENHYDRAMINE HYDROCHLORIDE
  46. B active [Concomitant]

REACTIONS (24)
  - Malignant melanoma [Unknown]
  - Angioedema [Unknown]
  - Infusion related reaction [Unknown]
  - Vulvovaginal mycotic infection [Unknown]
  - COVID-19 [Recovered/Resolved]
  - Multiple allergies [Unknown]
  - Viral pharyngitis [Unknown]
  - Postoperative wound infection [Unknown]
  - Tenderness [Unknown]
  - Lip scab [Unknown]
  - Discomfort [Recovering/Resolving]
  - Oral herpes [Unknown]
  - Viral infection [Recovered/Resolved]
  - Neck pain [Recovered/Resolved]
  - Chronic sinusitis [Unknown]
  - Vulvovaginal pruritus [Unknown]
  - Sinusitis [Recovered/Resolved]
  - Paraesthesia oral [Unknown]
  - Palpitations [Recovered/Resolved]
  - Pain [Recovered/Resolved]
  - Erythema [Unknown]
  - Chills [Recovered/Resolved]
  - Headache [Recovered/Resolved]
  - Myalgia [Recovered/Resolved]

NARRATIVE: CASE EVENT DATE: 20220429
